FAERS Safety Report 8608651-5 (Version None)
Quarter: 2012Q3

REPORT INFORMATION
  Report Type: 
  Country: None (occurrence: None)
  Receive Date: 20120821
  Receipt Date: 20120808
  Transmission Date: 20120928
  Serious: No
  Sender: FDA-Public Use
  Company Number: US-ASTRAZENECA-2012SE56359

PATIENT
  Age: 62 Year
  Sex: Female
  Weight: 94.3 kg

DRUGS (8)
  1. ASPIRIN [Concomitant]
  2. KOMBIGLYZE XR [Suspect]
     Dosage: 5/1000 2 CAP DAILY
     Route: 048
  3. MULTI-VITAMINS [Concomitant]
  4. PRAVASTATIN SODIUM [Concomitant]
  5. NEXIUM [Suspect]
     Route: 048
  6. NITROSTAT [Concomitant]
  7. CITALOPRAM HYDROBROMIDE [Concomitant]
  8. METOPROLOL TARTRATE [Suspect]
     Route: 048

REACTIONS (4)
  - TYPE 2 DIABETES MELLITUS [None]
  - BLOOD CHOLESTEROL INCREASED [None]
  - TYPE V HYPERLIPIDAEMIA [None]
  - VITAMIN D DEFICIENCY [None]
